FAERS Safety Report 9424538 (Version 3)
Quarter: 2013Q4

REPORT INFORMATION
  Report Type: Spontaneous
  Country: US (occurrence: US)
  Receive Date: 20130729
  Receipt Date: 20131108
  Transmission Date: 20140711
  Serious: Yes (Life-Threatening, Hospitalization, Other)
  Sender: FDA-Public Use
  Company Number: US-009507513-1307USA011615

PATIENT
  Age: 31 Year
  Sex: Female
  Weight: 94.79 kg

DRUGS (1)
  1. NUVARING [Suspect]
     Indication: CONTRACEPTION
     Dosage: UNK
     Route: 067
     Dates: start: 201204, end: 201307

REACTIONS (3)
  - Adverse event [Recovered/Resolved]
  - Chest pain [Recovered/Resolved]
  - Deep vein thrombosis [Recovered/Resolved]
